FAERS Safety Report 4790527-5 (Version None)
Quarter: 2005Q4

REPORT INFORMATION
  Report Type: 
  Country: None (occurrence: None)
  Receive Date: 20051005
  Receipt Date: 20050920
  Transmission Date: 20060501
  Serious: No
  Sender: FDA-Public Use
  Company Number: 2005AL003707

PATIENT
  Sex: Female

DRUGS (2)
  1. KADIAN [Suspect]
     Dosage: 150 MG;QD; PO
     Route: 048
  2. PEPCID [Suspect]
     Dosage: PO
     Route: 048

REACTIONS (1)
  - DYSPEPSIA [None]
